FAERS Safety Report 9089345 (Version 1)
Quarter: 2013Q1

REPORT INFORMATION
  Report Type: Spontaneous
  Country: US (occurrence: US)
  Receive Date: 20130201
  Receipt Date: 20130201
  Transmission Date: 20140127
  Serious: Yes (Other)
  Sender: FDA-Public Use
  Company Number: US-ABBOTT-12P-163-1029113-00

PATIENT
  Sex: Female

DRUGS (4)
  1. HUMIRA [Suspect]
     Indication: PSORIASIS
     Dates: start: 201202, end: 201210
  2. VECTICAL [Concomitant]
     Indication: PSORIASIS
  3. TACLONEX [Concomitant]
     Indication: PSORIASIS
  4. CLOBETASOL [Concomitant]
     Indication: PSORIASIS

REACTIONS (2)
  - Ovarian cancer [Not Recovered/Not Resolved]
  - Abdominal pain [Unknown]
